FAERS Safety Report 9764125 (Version 1)
Quarter: 2013Q4

REPORT INFORMATION
  Report Type: Spontaneous
  Country: US (occurrence: US)
  Receive Date: 20131216
  Receipt Date: 20131216
  Transmission Date: 20140711
  Serious: No
  Sender: FDA-Public Use
  Company Number: US-BIOGENIDEC-2013BI115629

PATIENT
  Sex: Female

DRUGS (16)
  1. TECFIDERA [Suspect]
     Indication: MULTIPLE SCLEROSIS
     Route: 048
  2. TECFIDERA [Suspect]
     Indication: MULTIPLE SCLEROSIS
  3. ONGLYZA [Concomitant]
  4. CENTRUM MULTIVITAMIN [Concomitant]
  5. PANTOPRAZOLE SODIUM [Concomitant]
  6. DIOVAN HCT [Concomitant]
  7. CITALOPRAM HBR [Concomitant]
  8. PRAVASTATIN [Concomitant]
  9. VICTOZA [Concomitant]
  10. FERROUS GLUCONATE [Concomitant]
  11. CHROMIUM PICO [Concomitant]
  12. NASOGEL SALINE NOSE GEL [Concomitant]
  13. ASPIRIN [Concomitant]
  14. TOPAMAX [Concomitant]
  15. NUVIGIL 250 [Concomitant]
  16. CVS VITAMIN D [Concomitant]

REACTIONS (2)
  - Decreased appetite [Unknown]
  - Constipation [Unknown]
